FAERS Safety Report 9820155 (Version 1)
Quarter: 2013Q4

REPORT INFORMATION
  Report Type: Spontaneous
  Country: US (occurrence: None)
  Receive Date: 20131223
  Receipt Date: 20131223
  Transmission Date: 20140711
  Serious: No
  Sender: FDA-Public Use
  Company Number: 220789

PATIENT
  Age: 47 Year
  Sex: Female

DRUGS (1)
  1. PICATO [Suspect]
     Indication: PRODUCT USED FOR UNKNOWN INDICATION
     Dosage: ONCE DAILY FOR 3 DAYS
     Dates: start: 20130226, end: 20130226

REACTIONS (2)
  - Application site vesicles [None]
  - Incorrect drug administration duration [None]
